FAERS Safety Report 4933955-7 (Version None)
Quarter: 2006Q1

REPORT INFORMATION
  Report Type: 
  Country: None (occurrence: None)
  Receive Date: 20060303
  Receipt Date: 20060220
  Transmission Date: 20060701
  Serious: Yes (Life-Threatening, Hospitalization)
  Sender: FDA-Public Use
  Company Number: JP-2006-002272

PATIENT
  Age: 56 Year
  Sex: Male

DRUGS (1)
  1. PROSCOPE 300(IOPROMIDE) SOLUTION [Suspect]
     Indication: COMPUTERISED TOMOGRAM
     Dosage: 100 ML, 1 DOSE, IV BOLUS
     Route: 040
     Dates: start: 20060203, end: 20060203

REACTIONS (8)
  - ANAPHYLACTIC SHOCK [None]
  - BLOOD PRESSURE SYSTOLIC DECREASED [None]
  - CYANOSIS [None]
  - DYSPHORIA [None]
  - IODINE ALLERGY [None]
  - NAUSEA [None]
  - OXYGEN SATURATION DECREASED [None]
  - PRURITUS [None]
